FAERS Safety Report 11212620 (Version 2)
Quarter: 2015Q3

REPORT INFORMATION
  Report Type: Report from Study
  Country: US (occurrence: US)
  Receive Date: 20150623
  Receipt Date: 20150713
  Transmission Date: 20151125
  Serious: Yes (Death, Hospitalization)
  Sender: FDA-Public Use
  Company Number: US-ACTELION-A-NJ2015-119514

PATIENT
  Age: 46 Year
  Sex: Female

DRUGS (1)
  1. MACITENTAN [Suspect]
     Active Substance: MACITENTAN
     Indication: PULMONARY ARTERIAL HYPERTENSION
     Dosage: 10 MG, QD
     Route: 048
     Dates: start: 201411, end: 20150627

REACTIONS (5)
  - Mental status changes [Fatal]
  - Pyrexia [Fatal]
  - Lupus encephalitis [Fatal]
  - Heart rate increased [Unknown]
  - Atrial fibrillation [Unknown]

NARRATIVE: CASE EVENT DATE: 20150528
